FAERS Safety Report 6721289-X (Version None)
Quarter: 2010Q2

REPORT INFORMATION
  Report Type: 
  Country: None (occurrence: None)
  Receive Date: 20100512
  Receipt Date: 20100429
  Transmission Date: 20101027
  Serious: Yes (Other)
  Sender: FDA-Public Use
  Company Number: PHHY2010US20378

PATIENT
  Sex: Male
  Weight: 72 kg

DRUGS (1)
  1. EXJADE [Suspect]
     Dosage: 2250 MG, QD
     Route: 048

REACTIONS (5)
  - ABDOMINAL DISCOMFORT [None]
  - BLOOD POTASSIUM INCREASED [None]
  - DIARRHOEA [None]
  - VOMITING [None]
  - WEIGHT DECREASED [None]
